FAERS Safety Report 15308207 (Version 2)
Quarter: 2018Q3

REPORT INFORMATION
  Report Type: Spontaneous
  Country: US (occurrence: US)
  Receive Date: 20180822
  Receipt Date: 20180912
  Transmission Date: 20181010
  Serious: No
  Sender: FDA-Public Use
  Company Number: US-SA-2018SA229577

PATIENT
  Sex: Female

DRUGS (1)
  1. LANTUS SOLOSTAR [Suspect]
     Active Substance: INSULIN GLARGINE
     Indication: LATENT AUTOIMMUNE DIABETES IN ADULTS
     Dosage: 26 U, QD
     Route: 065

REACTIONS (3)
  - Blood glucose increased [Unknown]
  - Device issue [Unknown]
  - Drug ineffective [Unknown]
